FAERS Safety Report 22751836 (Version 5)
Quarter: 2024Q2

REPORT INFORMATION
  Report Type: Report from Study
  Country: US (occurrence: US)
  Receive Date: 20230726
  Receipt Date: 20240415
  Transmission Date: 20240716
  Serious: Yes (Other)
  Sender: FDA-Public Use
  Company Number: US-ABBVIE-5341530

PATIENT
  Sex: Male

DRUGS (4)
  1. HUMIRA [Suspect]
     Active Substance: ADALIMUMAB
     Indication: Crohn^s disease
     Dosage: FORM STRENGTH: 40 MILLIGRAM LAST ADMIN DATE: DEC 2020?CITRATE FREE
     Route: 058
     Dates: start: 202012
  2. HUMIRA [Suspect]
     Active Substance: ADALIMUMAB
     Dosage: FORM STRENGTH: 40 MILLIGRAM?CITRATE FREE  LAST ADMIN DATE:  DEC 2020
     Route: 058
     Dates: start: 202012
  3. HUMIRA [Suspect]
     Active Substance: ADALIMUMAB
     Dosage: FORM STRENGTH: 40 MILLIGRAM?CITRATE FREE LAST ADMIN DATE:  DEC 2020
     Route: 058
     Dates: start: 20201210
  4. HUMIRA [Suspect]
     Active Substance: ADALIMUMAB
     Route: 058
     Dates: start: 202012

REACTIONS (7)
  - Pancreatic disorder [Unknown]
  - Blood pressure increased [Unknown]
  - Procedural pain [Unknown]
  - Complication associated with device [Not Recovered/Not Resolved]
  - Impaired healing [Unknown]
  - Wound complication [Unknown]
  - Heart rate increased [Unknown]

NARRATIVE: CASE EVENT DATE: 20230101
